FAERS Safety Report 11233911 (Version 3)
Quarter: 2015Q3

REPORT INFORMATION
  Report Type: Spontaneous
  Country: CH (occurrence: CH)
  Receive Date: 20150702
  Receipt Date: 20150708
  Transmission Date: 20151125
  Serious: Yes (Hospitalization, Other)
  Sender: FDA-Public Use
  Company Number: CH-ROCHE-1602060

PATIENT
  Age: 42 Year
  Sex: Female

DRUGS (8)
  1. XOLAIR [Suspect]
     Active Substance: OMALIZUMAB
     Route: 065
     Dates: start: 20141203
  2. XOLAIR [Suspect]
     Active Substance: OMALIZUMAB
     Route: 065
     Dates: start: 20150304
  3. XOLAIR [Suspect]
     Active Substance: OMALIZUMAB
     Route: 065
     Dates: start: 20150603
  4. XOLAIR [Suspect]
     Active Substance: OMALIZUMAB
     Route: 065
     Dates: start: 20150107
  5. XOLAIR [Suspect]
     Active Substance: OMALIZUMAB
     Route: 065
     Dates: start: 20150204
  6. XOLAIR [Suspect]
     Active Substance: OMALIZUMAB
     Route: 065
     Dates: start: 20150408, end: 20150414
  7. CYCLOSPORIN A [Concomitant]
     Active Substance: CYCLOSPORINE
     Dosage: UNTIL /AUG/2015
     Route: 065
  8. XOLAIR [Suspect]
     Active Substance: OMALIZUMAB
     Indication: CHRONIC SPONTANEOUS URTICARIA
     Route: 065
     Dates: start: 20141101

REACTIONS (4)
  - Chronic spontaneous urticaria [Unknown]
  - Arthropod infestation [Unknown]
  - Rosacea [Unknown]
  - Dermatosis [Unknown]

NARRATIVE: CASE EVENT DATE: 201501
